FAERS Safety Report 21551539 (Version 3)
Quarter: 2022Q4

REPORT INFORMATION
  Report Type: Report from Study
  Country: PL (occurrence: PL)
  Receive Date: 20221104
  Receipt Date: 20221111
  Transmission Date: 20230113
  Serious: Yes (Hospitalization, Other)
  Sender: FDA-Public Use
  Company Number: PL-JNJFOC-20221054576

PATIENT
  Age: 64 Year
  Sex: Female
  Weight: 93 kg

DRUGS (19)
  1. ESKETAMINE [Suspect]
     Active Substance: ESKETAMINE
     Indication: Depression
     Dates: start: 20170606, end: 20221018
  2. ESKETAMINE [Suspect]
     Active Substance: ESKETAMINE
     Dates: start: 20221104, end: 20221104
  3. TIMONACIC [Concomitant]
     Active Substance: TIMONACIC
     Indication: Alanine aminotransferase increased
     Route: 048
     Dates: start: 20200506, end: 20220802
  4. OMEPRAZOLE [Concomitant]
     Active Substance: OMEPRAZOLE
     Indication: Prophylaxis
     Route: 048
     Dates: start: 20201124, end: 20220802
  5. URSOCAM [Concomitant]
     Indication: Prophylaxis
     Route: 048
     Dates: start: 2020, end: 20220802
  6. CANDESARTAN CILEXETIL [Concomitant]
     Active Substance: CANDESARTAN CILEXETIL
     Indication: Hypertension
     Route: 048
     Dates: start: 20201124, end: 20220802
  7. TORSEMIDE [Concomitant]
     Active Substance: TORSEMIDE
     Indication: Hypertension
     Route: 048
     Dates: start: 20201124, end: 20220802
  8. PANTOPRAZOLE SODIUM [Concomitant]
     Active Substance: PANTOPRAZOLE SODIUM
     Indication: Prophylaxis against gastrointestinal ulcer
     Route: 048
     Dates: start: 20220803
  9. HEPAREGEN [Concomitant]
     Indication: Hepatic steatosis
     Route: 048
     Dates: start: 20220803
  10. COROSWERA [Concomitant]
     Indication: Prophylaxis
     Route: 048
     Dates: start: 20220406, end: 20220802
  11. COROSWERA [Concomitant]
     Dosage: 40+10 MG
  12. ASPIRIN [Concomitant]
     Active Substance: ASPIRIN
  13. CLOPIDOGREL BISULFATE [Concomitant]
     Active Substance: CLOPIDOGREL BISULFATE
  14. BISOPROLOL [Concomitant]
     Active Substance: BISOPROLOL
  15. RAMIPRIL [Concomitant]
     Active Substance: RAMIPRIL
  16. ALLOPURINOL [Concomitant]
     Active Substance: ALLOPURINOL
  17. CITAXIN [Concomitant]
  18. EUTHYROX [Concomitant]
     Active Substance: LEVOTHYROXINE SODIUM
  19. METFORMIN HYDROCHLORIDE [Concomitant]
     Active Substance: METFORMIN HYDROCHLORIDE

REACTIONS (1)
  - Coronary artery stenosis [Recovered/Resolved]

NARRATIVE: CASE EVENT DATE: 20221024
